FAERS Safety Report 23556693 (Version 3)
Quarter: 2024Q1

REPORT INFORMATION
  Report Type: Spontaneous
  Country: US (occurrence: US)
  Receive Date: 20240223
  Receipt Date: 20240321
  Transmission Date: 20240409
  Serious: No
  Sender: FDA-Public Use
  Company Number: US-OPELLA-2024OHG005164

PATIENT
  Age: 52 Year
  Sex: Female

DRUGS (1)
  1. CHILDRENS XYZAL ALLERGY 24HR [Suspect]
     Active Substance: LEVOCETIRIZINE DIHYDROCHLORIDE
     Indication: Mast cell activation syndrome
     Route: 065

REACTIONS (3)
  - Product administered to patient of inappropriate age [Unknown]
  - Product formulation issue [Unknown]
  - Anxiety [Unknown]
